FAERS Safety Report 23301398 (Version 1)
Quarter: 2023Q4

REPORT INFORMATION
  Report Type: Spontaneous
  Country: US (occurrence: US)
  Receive Date: 20231215
  Receipt Date: 20231215
  Transmission Date: 20240109
  Serious: No
  Sender: FDA-Public Use
  Company Number: US-ABBVIE-5540777

PATIENT
  Age: 82 Year
  Sex: Female
  Weight: 70.306 kg

DRUGS (3)
  1. LINZESS [Suspect]
     Active Substance: LINACLOTIDE
     Indication: Diarrhoea
     Dosage: FORM STRENGTH: 290 MICROGRAM
     Route: 048
     Dates: start: 202311, end: 202311
  2. LINZESS [Suspect]
     Active Substance: LINACLOTIDE
     Indication: Diarrhoea
     Dosage: FORM STRENGTH: 72 MICROGRAM
     Route: 048
     Dates: start: 20231203, end: 20231207
  3. INSULIN NOS [Concomitant]
     Active Substance: INSULIN NOS
     Indication: Type 1 diabetes mellitus

REACTIONS (1)
  - Diarrhoea [Recovering/Resolving]

NARRATIVE: CASE EVENT DATE: 20231101
